FAERS Safety Report 8150399-8 (Version None)
Quarter: 2012Q1

REPORT INFORMATION
  Report Type: 
  Country: None (occurrence: None)
  Receive Date: 20120220
  Receipt Date: 20120215
  Transmission Date: 20120608
  Serious: Yes (Other)
  Sender: FDA-Public Use
  Company Number: US-PFIZER INC-2012034617

PATIENT
  Sex: Male

DRUGS (4)
  1. PROTONIX [Suspect]
     Dosage: 40 MG, UNK
  2. NORVASC [Suspect]
     Dosage: 5 MG, UNK
  3. LIPITOR [Suspect]
     Dosage: 10 MG, UNK
  4. VIAGRA [Suspect]
     Dosage: 100 MG, UNK

REACTIONS (1)
  - LOWER LIMB FRACTURE [None]
